FAERS Safety Report 4741825-2 (Version None)
Quarter: 2005Q3

REPORT INFORMATION
  Report Type: 
  Country: None (occurrence: None)
  Receive Date: 20050808
  Receipt Date: 20050726
  Transmission Date: 20060218
  Serious: Yes (Other)
  Sender: FDA-Public Use
  Company Number: 2005108345

PATIENT
  Age: 71 Year
  Sex: Female

DRUGS (4)
  1. XALATAN [Suspect]
     Indication: INTRAOCULAR PRESSURE INCREASED
     Dosage: INTRACULAR
     Route: 031
     Dates: start: 20010220
  2. BETOPTIC [Concomitant]
  3. DETANTOL (BUNAZOSIN HYDROCHLORIDE) [Concomitant]
  4. HYALEIN (HYALURONATE SODIUM) [Concomitant]

REACTIONS (1)
  - HEADACHE [None]
